FAERS Safety Report 8301282-6 (Version None)
Quarter: 2012Q2

REPORT INFORMATION
  Report Type: 
  Country: None (occurrence: None)
  Receive Date: 20120420
  Receipt Date: 20120419
  Transmission Date: 20120825
  Serious: No
  Sender: FDA-Public Use
  Company Number: US-BAYER-2012-038386

PATIENT
  Age: 85 Year
  Sex: Male

DRUGS (4)
  1. AVELOX [Suspect]
     Indication: PNEUMONIA
  2. FENTANYL [Concomitant]
  3. OXYCONTIN [Concomitant]
  4. REVLIMID [Concomitant]

REACTIONS (1)
  - HYPERSENSITIVITY [None]
